FAERS Safety Report 4783398-4 (Version None)
Quarter: 2005Q3

REPORT INFORMATION
  Report Type: 
  Country: None (occurrence: None)
  Receive Date: 20050914
  Receipt Date: 20040817
  Transmission Date: 20060218
  Serious: Yes (Death)
  Sender: FDA-Public Use
  Company Number: 163-20785-04040435

PATIENT
  Age: 67 Year
  Sex: Male

DRUGS (11)
  1. THALOMID [Suspect]
     Indication: METASTASES TO CENTRAL NERVOUS SYSTEM
     Dosage: 200 MG, DAILY, ORAL;  100 MG, DAILY, ORAL;  150 MG, DAILY, ORAL
     Route: 048
     Dates: start: 20040225, end: 20040101
  2. THALOMID [Suspect]
     Indication: METASTASES TO LUNG
     Dosage: 200 MG, DAILY, ORAL;  100 MG, DAILY, ORAL;  150 MG, DAILY, ORAL
     Route: 048
     Dates: start: 20040225, end: 20040101
  3. THALOMID [Suspect]
     Indication: RENAL CELL CARCINOMA STAGE UNSPECIFIED
     Dosage: 200 MG, DAILY, ORAL;  100 MG, DAILY, ORAL;  150 MG, DAILY, ORAL
     Route: 048
     Dates: start: 20040225, end: 20040101
  4. THALOMID [Suspect]
     Indication: METASTASES TO CENTRAL NERVOUS SYSTEM
     Dosage: 200 MG, DAILY, ORAL;  100 MG, DAILY, ORAL;  150 MG, DAILY, ORAL
     Route: 048
     Dates: start: 20040407, end: 20040101
  5. THALOMID [Suspect]
     Indication: METASTASES TO LUNG
     Dosage: 200 MG, DAILY, ORAL;  100 MG, DAILY, ORAL;  150 MG, DAILY, ORAL
     Route: 048
     Dates: start: 20040407, end: 20040101
  6. THALOMID [Suspect]
     Indication: RENAL CELL CARCINOMA STAGE UNSPECIFIED
     Dosage: 200 MG, DAILY, ORAL;  100 MG, DAILY, ORAL;  150 MG, DAILY, ORAL
     Route: 048
     Dates: start: 20040407, end: 20040101
  7. THALOMID [Suspect]
     Indication: METASTASES TO CENTRAL NERVOUS SYSTEM
     Dosage: 200 MG, DAILY, ORAL;  100 MG, DAILY, ORAL;  150 MG, DAILY, ORAL
     Route: 048
     Dates: start: 20040101, end: 20040406
  8. THALOMID [Suspect]
     Indication: METASTASES TO LUNG
     Dosage: 200 MG, DAILY, ORAL;  100 MG, DAILY, ORAL;  150 MG, DAILY, ORAL
     Route: 048
     Dates: start: 20040101, end: 20040406
  9. THALOMID [Suspect]
     Indication: RENAL CELL CARCINOMA STAGE UNSPECIFIED
     Dosage: 200 MG, DAILY, ORAL;  100 MG, DAILY, ORAL;  150 MG, DAILY, ORAL
     Route: 048
     Dates: start: 20040101, end: 20040406
  10. DECADRON [Concomitant]
  11. HERBAL PREPARATION (HERBAL PREPARATION) [Concomitant]

REACTIONS (7)
  - ANOREXIA [None]
  - CONSTIPATION [None]
  - DEATH [None]
  - DIARRHOEA [None]
  - DYSPEPSIA [None]
  - STOMACH DISCOMFORT [None]
  - VOMITING [None]
